FAERS Safety Report 8889446 (Version 2)
Quarter: 2013Q1

REPORT INFORMATION
  Report Type: Spontaneous
  Country: JP (occurrence: None)
  Receive Date: 20121031
  Receipt Date: 20121204
  Transmission Date: 20140127
  Serious: Yes (Other)
  Sender: FDA-Public Use
  Company Number: DSA_60413_2012

PATIENT
  Age: 71 Year
  Sex: Male
  Weight: 90 kg

DRUGS (10)
  1. RENIVACE [Suspect]
     Route: 048
     Dates: start: 20121012, end: 20121015
  2. RENIVACE [Suspect]
     Route: 048
     Dates: start: 20121012, end: 20121015
  3. RENIVACE [Suspect]
     Route: 048
     Dates: start: 20121012, end: 20121015
  4. LIVALO (LIVALO-PITAVASTATIN CALCIUM) [Concomitant]
     Route: 048
     Dates: start: 201106
  5. ZYLORIC [Suspect]
     Route: 048
     Dates: start: 201106
  6. NORVASC [Concomitant]
  7. MAINTATE [Concomitant]
  8. TAKEPRON [Concomitant]
  9. WYPAX [Concomitant]
  10. OLMETEC [Concomitant]

REACTIONS (1)
  - Rhabdomyolysis [None]
